FAERS Safety Report 16364534 (Version 3)
Quarter: 2019Q3

REPORT INFORMATION
  Report Type: Report from Study
  Country: None (occurrence: US)
  Receive Date: 20190528
  Receipt Date: 20190808
  Transmission Date: 20191004
  Serious: Yes (Other)
  Sender: FDA-Public Use
  Company Number: US-ABBVIE-19K-163-2795710-00

PATIENT
  Age: 76 Year
  Sex: Male
  Weight: 85.35 kg

DRUGS (6)
  1. VENCLEXTA [Suspect]
     Active Substance: VENETOCLAX
     Route: 048
     Dates: start: 20181016, end: 20181022
  2. VENCLEXTA [Suspect]
     Active Substance: VENETOCLAX
     Route: 048
     Dates: start: 20181009, end: 20181015
  3. VENCLEXTA [Suspect]
     Active Substance: VENETOCLAX
     Route: 048
     Dates: start: 20181030, end: 20181105
  4. VENCLEXTA [Suspect]
     Active Substance: VENETOCLAX
     Route: 048
     Dates: start: 20181023, end: 20181029
  5. VENCLEXTA [Suspect]
     Active Substance: VENETOCLAX
     Indication: ACUTE LYMPHOCYTIC LEUKAEMIA
     Route: 048
     Dates: start: 20181008, end: 20181008
  6. VENCLEXTA [Suspect]
     Active Substance: VENETOCLAX
     Route: 048
     Dates: start: 201811

REACTIONS (1)
  - Hepatocellular carcinoma [Not Recovered/Not Resolved]

NARRATIVE: CASE EVENT DATE: 201905
